FAERS Safety Report 21073389 (Version 1)
Quarter: 2022Q3

REPORT INFORMATION
  Report Type: Spontaneous
  Country: AU (occurrence: AU)
  Receive Date: 20220713
  Receipt Date: 20220713
  Transmission Date: 20221027
  Serious: Yes (Death, Other)
  Sender: FDA-Public Use
  Company Number: AU-AMGEN-AUSSP2022115478

PATIENT
  Age: 70 Year
  Sex: Male

DRUGS (8)
  1. FILGRASTIM [Suspect]
     Active Substance: FILGRASTIM
     Indication: Prophylaxis
     Dosage: UNK
     Route: 065
  2. PENTAMIDINE [Suspect]
     Active Substance: PENTAMIDINE
     Indication: Acanthamoeba infection
     Dosage: 280 MILLIGRAM, QD
     Route: 042
  3. MILTEFOSINE [Suspect]
     Active Substance: MILTEFOSINE
     Indication: Acanthamoeba infection
     Dosage: 50 MILLIGRAM, Q8H
     Route: 065
  4. MILTEFOSINE [Suspect]
     Active Substance: MILTEFOSINE
     Dosage: 50 MILLIGRAM, Q12H
     Route: 065
  5. IBRUTINIB [Concomitant]
     Active Substance: IBRUTINIB
     Indication: Chronic lymphocytic leukaemia
     Dosage: UNK
     Route: 065
  6. AZITHROMYCIN [Concomitant]
     Active Substance: AZITHROMYCIN
     Indication: Acanthamoeba infection
     Dosage: 500 MILLIGRAM, QD
     Route: 065
  7. COTRIMOXAZOLE [Concomitant]
     Active Substance: SULFAMETHOXAZOLE\TRIMETHOPRIM
     Indication: Prophylaxis
     Dosage: UNK
  8. POSACONAZOLE [Concomitant]
     Active Substance: POSACONAZOLE
     Indication: Prophylaxis
     Dosage: UNK

REACTIONS (3)
  - Febrile neutropenia [Fatal]
  - Pneumonia [Fatal]
  - Acanthamoeba infection [Unknown]
